FAERS Safety Report 8300492 (Version 4)
Quarter: 2015Q3

REPORT INFORMATION
  Report Type: Spontaneous
  Country: US (occurrence: US)
  Receive Date: 20111219
  Receipt Date: 20150715
  Transmission Date: 20151125
  Serious: Yes (Hospitalization, Other)
  Sender: FDA-Public Use
  Company Number: US-ASTRAZENECA-2010SE28051

PATIENT
  Age: 82 Year
  Sex: Male
  Weight: 100.2 kg

DRUGS (36)
  1. NEXIUM [Suspect]
     Active Substance: ESOMEPRAZOLE MAGNESIUM
     Route: 048
  2. CRESTOR [Suspect]
     Active Substance: ROSUVASTATIN CALCIUM
     Route: 048
     Dates: start: 20100526, end: 20100526
  3. CRESTOR [Suspect]
     Active Substance: ROSUVASTATIN CALCIUM
     Route: 048
     Dates: start: 20100526, end: 20100611
  4. CRESTOR [Suspect]
     Active Substance: ROSUVASTATIN CALCIUM
     Route: 048
     Dates: start: 20100101, end: 201005
  5. CRESTOR [Suspect]
     Active Substance: ROSUVASTATIN CALCIUM
     Route: 048
     Dates: start: 201005
  6. LASIX [Concomitant]
     Active Substance: FUROSEMIDE
     Dosage: 20 MG  AS DIRECTED THREE TIMES TTS
  7. LASIX [Concomitant]
     Active Substance: FUROSEMIDE
  8. CRESTOR [Suspect]
     Active Substance: ROSUVASTATIN CALCIUM
     Route: 048
     Dates: start: 20091228, end: 20101223
  9. LASIX [Concomitant]
     Active Substance: FUROSEMIDE
     Dates: start: 20150526
  10. LIPITOR [Concomitant]
     Active Substance: ATORVASTATIN CALCIUM
     Dates: start: 20070918, end: 20071121
  11. CRESTOR [Suspect]
     Active Substance: ROSUVASTATIN CALCIUM
     Route: 048
     Dates: start: 20091228, end: 20100526
  12. CRESTOR [Suspect]
     Active Substance: ROSUVASTATIN CALCIUM
     Route: 048
     Dates: start: 20100611, end: 20110427
  13. ASPIRIN EC [Concomitant]
     Active Substance: ASPIRIN
  14. NIASPAN [Concomitant]
     Active Substance: NIACIN
     Dates: start: 20070608, end: 20100903
  15. VYTORIN [Concomitant]
     Active Substance: EZETIMIBE\SIMVASTATIN
     Dosage: 10-40
     Route: 048
  16. CRESTOR [Suspect]
     Active Substance: ROSUVASTATIN CALCIUM
     Route: 048
     Dates: end: 20110608
  17. NIASPAN [Concomitant]
     Active Substance: NIACIN
     Dates: start: 20100903
  18. ZETIA [Concomitant]
     Active Substance: EZETIMIBE
     Dates: end: 20110429
  19. TYLENOL [Concomitant]
     Active Substance: ACETAMINOPHEN
     Indication: DISCOMFORT
     Dosage: 650 MG EVERY 4 HOURS AS NEEDED
  20. CRESTOR [Suspect]
     Active Substance: ROSUVASTATIN CALCIUM
     Route: 048
  21. RANEXA [Concomitant]
     Active Substance: RANOLAZINE
     Route: 048
     Dates: start: 20091228, end: 20101223
  22. COREG CR [Concomitant]
     Active Substance: CARVEDILOL PHOSPHATE
  23. CRESTOR [Suspect]
     Active Substance: ROSUVASTATIN CALCIUM
     Route: 048
  24. FINASTERIDE. [Concomitant]
     Active Substance: FINASTERIDE
  25. INSPRA [Concomitant]
     Active Substance: EPLERENONE
  26. VALIUM [Concomitant]
     Active Substance: DIAZEPAM
  27. NEXIUM [Suspect]
     Active Substance: ESOMEPRAZOLE MAGNESIUM
     Route: 048
     Dates: start: 2010
  28. CRESTOR [Suspect]
     Active Substance: ROSUVASTATIN CALCIUM
     Route: 048
     Dates: end: 20110427
  29. ISOSORBIDE MONONITRATE. [Concomitant]
     Active Substance: ISOSORBIDE MONONITRATE
     Route: 048
  30. ALLEGRA [Concomitant]
     Active Substance: FEXOFENADINE HYDROCHLORIDE
  31. CITRUCEL [Concomitant]
     Active Substance: METHYLCELLULOSE (4000 MPA.S)
     Dosage: AS NEEDED
  32. DIOVAN [Concomitant]
     Active Substance: VALSARTAN
  33. IMDUR [Concomitant]
     Active Substance: ISOSORBIDE MONONITRATE
  34. ALLOPURINOL. [Concomitant]
     Active Substance: ALLOPURINOL
  35. PLAVIX [Concomitant]
     Active Substance: CLOPIDOGREL BISULFATE
  36. VITAMIN D [Concomitant]
     Active Substance: CHOLECALCIFEROL
     Dosage: 5000 U ONCE MONTHLY

REACTIONS (27)
  - Cerebrovascular accident [Unknown]
  - Fall [Unknown]
  - Hyperlipidaemia [Unknown]
  - Angina pectoris [Unknown]
  - Carotid artery disease [Unknown]
  - Weight increased [Unknown]
  - Atrioventricular block complete [Unknown]
  - Aortic aneurysm [Unknown]
  - Cardiac disorder [Unknown]
  - Fluid retention [Unknown]
  - Renal failure [Recovering/Resolving]
  - Hypertension [Unknown]
  - Low density lipoprotein increased [Unknown]
  - Neurodegenerative disorder [Unknown]
  - Influenza [Unknown]
  - Ischaemic cardiomyopathy [Unknown]
  - Sinus node dysfunction [Unknown]
  - Fatigue [Unknown]
  - Hypercholesterolaemia [Unknown]
  - Dementia [Unknown]
  - Dyslexia [Unknown]
  - Coronary artery disease [Unknown]
  - Cardiac failure chronic [Unknown]
  - Dehydration [Unknown]
  - Hiatus hernia [Unknown]
  - Asthenia [Unknown]
  - Peripheral swelling [Unknown]

NARRATIVE: CASE EVENT DATE: 20100205
